FAERS Safety Report 15989941 (Version 1)
Quarter: 2019Q1

REPORT INFORMATION
  Report Type: Spontaneous
  Country: US (occurrence: US)
  Receive Date: 20190221
  Receipt Date: 20190221
  Transmission Date: 20190418
  Serious: No
  Sender: FDA-Public Use
  Company Number: US-PFIZER INC-2019016019

PATIENT
  Age: 12 Year
  Sex: Female
  Weight: 49.9 kg

DRUGS (1)
  1. GENOTROPIN [Suspect]
     Active Substance: SOMATROPIN
     Indication: BODY HEIGHT BELOW NORMAL
     Dosage: UNK, ALTERNATE DAY (1.4MG AND 1.6MG ALTERNATING DAILY)
     Route: 058
     Dates: start: 20190131

REACTIONS (2)
  - Headache [Recovering/Resolving]
  - Product prescribing error [Unknown]

NARRATIVE: CASE EVENT DATE: 20190207
